FAERS Safety Report 17414853 (Version 7)
Quarter: 2025Q1

REPORT INFORMATION
  Report Type: Spontaneous
  Country: US (occurrence: US)
  Receive Date: 20200213
  Receipt Date: 20250128
  Transmission Date: 20250409
  Serious: Yes (Hospitalization, Other)
  Sender: PFIZER
  Company Number: US-PFIZER INC-2020064377

PATIENT
  Age: 83 Year
  Sex: Female

DRUGS (3)
  1. XELJANZ XR [Suspect]
     Active Substance: TOFACITINIB CITRATE
     Dates: end: 20190409
  2. XELJANZ XR [Suspect]
     Active Substance: TOFACITINIB CITRATE
     Dosage: TAKE 1 TABLET (11 MG TOTAL) BY MOUTH DAILY
     Route: 048
     Dates: start: 20190906
  3. XELJANZ XR [Suspect]
     Active Substance: TOFACITINIB CITRATE

REACTIONS (7)
  - Pneumonia [Unknown]
  - Knee arthroplasty [Unknown]
  - Procedural pain [Unknown]
  - Arthralgia [Unknown]
  - Angina pectoris [Unknown]
  - Back pain [Unknown]
  - Chest pain [Not Recovered/Not Resolved]

NARRATIVE: CASE EVENT DATE: 20190814
